FAERS Safety Report 4436673-7 (Version None)
Quarter: 2004Q3

REPORT INFORMATION
  Report Type: 
  Country: None (occurrence: None)
  Receive Date: 20040728
  Receipt Date: 20031112
  Transmission Date: 20050211
  Serious: Yes (Hospitalization, Other)
  Sender: FDA-Public Use
  Company Number: 203063

PATIENT
  Age: 77 Year
  Sex: Male
  Weight: 83 kg

DRUGS (1)
  1. RITUXAN [Suspect]
     Indication: LYMPHOCYTIC LYMPHOMA
     Dosage: 780 MG, 1/WEEK, INTRAVENOUS
     Route: 042
     Dates: start: 20031027

REACTIONS (4)
  - BRADYCARDIA [None]
  - HYPOTENSION [None]
  - HYPOXIA [None]
  - RESPIRATORY DISTRESS [None]
